FAERS Safety Report 13315403 (Version 1)
Quarter: 2017Q1

REPORT INFORMATION
  Report Type: Spontaneous
  Country: US (occurrence: US)
  Receive Date: 20170310
  Receipt Date: 20170310
  Transmission Date: 20170428
  Serious: Yes (Hospitalization, Other)
  Sender: FDA-Public Use
  Company Number: US-ASTRAZENECA-2017SE23749

PATIENT
  Age: 51 Year
  Sex: Male

DRUGS (1)
  1. SYMBICORT [Suspect]
     Active Substance: BUDESONIDE\FORMOTEROL FUMARATE DIHYDRATE
     Indication: CHRONIC OBSTRUCTIVE PULMONARY DISEASE
     Dosage: 2 P, TWO TIMES A DAY
     Route: 055
     Dates: start: 2014

REACTIONS (5)
  - Memory impairment [Unknown]
  - Intentional product use issue [Unknown]
  - Cerebrovascular accident [Unknown]
  - Device malfunction [Unknown]
  - Coma [Unknown]

NARRATIVE: CASE EVENT DATE: 2014
